FAERS Safety Report 21180149 (Version 1)
Quarter: 2022Q3

REPORT INFORMATION
  Report Type: Report from Study
  Country: CA (occurrence: CA)
  Receive Date: 20220806
  Receipt Date: 20220806
  Transmission Date: 20221027
  Serious: Yes (Other)
  Sender: FDA-Public Use
  Company Number: CA-ABBVIE-22K-028-4492971-00

PATIENT
  Sex: Female

DRUGS (1)
  1. HUMIRA [Suspect]
     Active Substance: ADALIMUMAB
     Indication: Crohn^s disease
     Route: 058
     Dates: start: 20180729

REACTIONS (16)
  - Abdominal distension [Unknown]
  - Abdominal pain [Unknown]
  - Abdominal hernia [Unknown]
  - Haemorrhage [Unknown]
  - Gastrointestinal wall thickening [Unknown]
  - Terminal ileitis [Unknown]
  - Gastrointestinal inflammation [Unknown]
  - Frequent bowel movements [Not Recovered/Not Resolved]
  - Post procedural discharge [Unknown]
  - Scar [Unknown]
  - Abdominal tenderness [Unknown]
  - White blood cell count increased [Not Recovered/Not Resolved]
  - Increased tendency to bruise [Unknown]
  - Rectal haemorrhage [Recovering/Resolving]
  - Diarrhoea [Unknown]
  - Muscle spasms [Unknown]

NARRATIVE: CASE EVENT DATE: 20180101
